FAERS Safety Report 18101670 (Version 1)
Quarter: 2020Q3

REPORT INFORMATION
  Report Type: Report from Study
  Country: IN (occurrence: IN)
  Receive Date: 20200801
  Receipt Date: 20200801
  Transmission Date: 20201103
  Serious: Yes (Death)
  Sender: FDA-Public Use
  Company Number: NVSC2020IN215268

PATIENT
  Age: 34 Year
  Sex: Female

DRUGS (1)
  1. NEORAL [Suspect]
     Active Substance: CYCLOSPORINE
     Indication: BONE MARROW TRANSPLANT
     Dosage: 100 MG, BID
     Route: 065
     Dates: start: 20200115

REACTIONS (1)
  - Death [Fatal]

NARRATIVE: CASE EVENT DATE: 20200702
